FAERS Safety Report 24149966 (Version 4)
Quarter: 2024Q4

REPORT INFORMATION
  Report Type: Spontaneous
  Country: US (occurrence: US)
  Receive Date: 20240730
  Receipt Date: 20241022
  Transmission Date: 20250115
  Serious: No
  Sender: ROCHE
  Company Number: US-ROCHE-10000034032

PATIENT
  Age: 70 Year
  Sex: Male

DRUGS (2)
  1. XOLAIR [Suspect]
     Active Substance: OMALIZUMAB
     Indication: Product used for unknown indication
     Route: 058
  2. XOLAIR [Suspect]
     Active Substance: OMALIZUMAB

REACTIONS (7)
  - Product dose omission issue [Unknown]
  - Device malfunction [Unknown]
  - Device issue [Unknown]
  - Needle issue [Unknown]
  - Product complaint [Unknown]
  - Dyspnoea [Unknown]
  - Underdose [Unknown]

NARRATIVE: CASE EVENT DATE: 20240717
